FAERS Safety Report 12284997 (Version 3)
Quarter: 2016Q3

REPORT INFORMATION
  Report Type: Report from Study
  Country: US (occurrence: US)
  Receive Date: 20160420
  Receipt Date: 20160720
  Transmission Date: 20161109
  Serious: No
  Sender: FDA-Public Use
  Company Number: PHEH2016US009199

PATIENT
  Age: 22 Year
  Sex: Female

DRUGS (5)
  1. COSENTYX [Suspect]
     Active Substance: SECUKINUMAB
     Indication: PRODUCT USED FOR UNKNOWN INDICATION
     Dosage: 300 MG, QMO
     Route: 058
     Dates: start: 20150721
  2. COSENTYX [Suspect]
     Active Substance: SECUKINUMAB
     Dosage: 300 MG, QMO
     Route: 058
  3. CLOBETASOL [Concomitant]
     Active Substance: CLOBETASOL
     Indication: PSORIASIS
     Dosage: UNK UNK, BID
     Route: 061
  4. AMLODIPINE [Concomitant]
     Active Substance: AMLODIPINE BESYLATE
     Indication: PRODUCT USED FOR UNKNOWN INDICATION
     Dosage: 5 MG, UNK
     Route: 065
  5. LEVOTHYROXINE. [Concomitant]
     Active Substance: LEVOTHYROXINE
     Indication: PRODUCT USED FOR UNKNOWN INDICATION
     Route: 065

REACTIONS (25)
  - Total cholesterol/HDL ratio increased [Unknown]
  - Glucocorticoids increased [Unknown]
  - High density lipoprotein decreased [Unknown]
  - Red cell distribution width increased [Unknown]
  - Tri-iodothyronine uptake decreased [Unknown]
  - Blood lactate dehydrogenase increased [Unknown]
  - White blood cell count increased [Unknown]
  - Low density lipoprotein increased [Unknown]
  - Aspartate aminotransferase increased [Unknown]
  - Alanine aminotransferase increased [Unknown]
  - Anaemia [Unknown]
  - Blood uric acid increased [Unknown]
  - Thyroxine decreased [Unknown]
  - Hypothyroidism [Unknown]
  - Mean cell haemoglobin concentration decreased [Unknown]
  - Blood thyroid stimulating hormone increased [Unknown]
  - Peripheral swelling [Unknown]
  - Hypertension [Unknown]
  - Haemoglobin decreased [Unknown]
  - Mean cell volume decreased [Unknown]
  - Mean cell haemoglobin decreased [Unknown]
  - Blood glucose increased [Unknown]
  - Oedema peripheral [Recovering/Resolving]
  - Haematocrit decreased [Unknown]
  - Free thyroxine index decreased [Unknown]

NARRATIVE: CASE EVENT DATE: 20160111
